FAERS Safety Report 18435677 (Version 2)
Quarter: 2020Q4

REPORT INFORMATION
  Report Type: Spontaneous
  Country: US (occurrence: US)
  Receive Date: 20201028
  Receipt Date: 20201125
  Transmission Date: 20210114
  Serious: No
  Sender: FDA-Public Use
  Company Number: US-PFIZER INC-2020281078

PATIENT
  Age: 12 Year
  Sex: Male
  Weight: 26.31 kg

DRUGS (1)
  1. GENOTROPIN [Suspect]
     Active Substance: SOMATROPIN
     Indication: SHORT STATURE
     Dosage: 0.6 MG, DAILY
     Dates: start: 202008

REACTIONS (4)
  - Product dose omission issue [Unknown]
  - Device issue [Unknown]
  - Product dispensing error [Unknown]
  - Product storage error [Unknown]
